FAERS Safety Report 4864165-X (Version None)
Quarter: 2005Q4

REPORT INFORMATION
  Report Type: 
  Country: None (occurrence: None)
  Receive Date: 20051222
  Receipt Date: 20051219
  Transmission Date: 20060501
  Serious: Yes (Death)
  Sender: FDA-Public Use
  Company Number: ES-GLAXOSMITHKLINE-B0404597A

PATIENT
  Age: 40 Year
  Sex: Male

DRUGS (2)
  1. KIVEXA [Suspect]
     Indication: HIV INFECTION
     Route: 048
  2. NEVIRAPINE [Concomitant]
     Indication: HIV INFECTION

REACTIONS (8)
  - DRUG HYPERSENSITIVITY [None]
  - DYSPEPSIA [None]
  - HEPATIC FAILURE [None]
  - HYPOTENSION [None]
  - MULTI-ORGAN FAILURE [None]
  - MYOCARDITIS [None]
  - RHABDOMYOLYSIS [None]
  - SYNCOPE [None]
